FAERS Safety Report 7830367-3 (Version None)
Quarter: 2011Q4

REPORT INFORMATION
  Report Type: 
  Country: None (occurrence: None)
  Receive Date: 20111021
  Receipt Date: 20111018
  Transmission Date: 20120403
  Serious: Yes (Hospitalization)
  Sender: FDA-Public Use
  Company Number: DE-SANOFI-AVENTIS-2011SA068251

PATIENT
  Age: 60 Year
  Sex: Male
  Weight: 100 kg

DRUGS (6)
  1. MULTAQ [Suspect]
     Indication: ATRIAL FIBRILLATION
     Route: 048
     Dates: start: 20090101, end: 20111001
  2. OMEPRAZOLE [Concomitant]
     Route: 048
     Dates: start: 19930101
  3. OXYCODONE HCL [Concomitant]
     Route: 048
     Dates: start: 20110101
  4. SPIRONOLACTONE [Concomitant]
     Indication: HYPERTENSION
     Route: 048
     Dates: start: 20110101
  5. PHENPROCOUMON [Concomitant]
     Route: 048
     Dates: start: 20090101
  6. BISOPROLOL [Concomitant]
     Indication: HYPERTENSION
     Route: 048
     Dates: start: 20100101

REACTIONS (3)
  - HYPOTENSION [None]
  - NOCTURNAL DYSPNOEA [None]
  - MALAISE [None]
